FAERS Safety Report 7442956-9 (Version None)
Quarter: 2011Q2

REPORT INFORMATION
  Report Type: 
  Country: None (occurrence: None)
  Receive Date: 20110428
  Receipt Date: 20110420
  Transmission Date: 20111010
  Serious: Yes (Hospitalization)
  Sender: FDA-Public Use
  Company Number: US-JNJFOC-20100304200

PATIENT
  Age: 23 Year
  Sex: Female

DRUGS (2)
  1. ACETAMINOPHEN [Suspect]
     Indication: ILL-DEFINED DISORDER
  2. ACETAMINOPHEN [Suspect]

REACTIONS (3)
  - INTENTIONAL OVERDOSE [None]
  - METABOLIC ACIDOSIS [None]
  - COMA [None]
